FAERS Safety Report 17693839 (Version 2)
Quarter: 2020Q2

REPORT INFORMATION
  Report Type: Spontaneous
  Country: US (occurrence: US)
  Receive Date: 20200422
  Receipt Date: 20200617
  Transmission Date: 20200714
  Serious: Yes (Hospitalization, Other)
  Sender: FDA-Public Use
  Company Number: US-NAPPMUNDI-USA-2020-0151887

PATIENT
  Age: 27 Year
  Sex: Male
  Weight: 74.83 kg

DRUGS (7)
  1. OXYCODONE HYDROCHLORIDE (SIMILAR TO NDA 22-272) [Suspect]
     Active Substance: OXYCODONE HYDROCHLORIDE
     Indication: PAIN
     Dosage: UNK
     Route: 048
     Dates: start: 2007
  2. SUBOXONE [Suspect]
     Active Substance: BUPRENORPHINE HYDROCHLORIDE\NALOXONE HYDROCHLORIDE
     Indication: PRODUCT USED FOR UNKNOWN INDICATION
     Dosage: UNK
     Route: 065
     Dates: start: 2011, end: 2016
  3. HYDROCODONE [Suspect]
     Active Substance: HYDROCODONE
     Indication: TENDON INJURY
     Dosage: TWO,  500 MG DAILY
     Route: 065
     Dates: start: 200605
  4. OXYCONTIN [Suspect]
     Active Substance: OXYCODONE HYDROCHLORIDE
     Indication: PAIN
     Dosage: UNK
     Route: 048
     Dates: start: 2007
  5. METHADONE [Suspect]
     Active Substance: METHADONE HYDROCHLORIDE
     Indication: PRODUCT USED FOR UNKNOWN INDICATION
     Route: 048
  6. HYDROCODONE [Suspect]
     Active Substance: HYDROCODONE
     Dosage: FOUR, 750 MG DAILY
     Route: 065
     Dates: end: 200609
  7. HEROIN [Suspect]
     Active Substance: DIAMORPHINE
     Indication: PRODUCT USED FOR UNKNOWN INDICATION
     Route: 065

REACTIONS (18)
  - Psychiatric symptom [Unknown]
  - Suicidal behaviour [Unknown]
  - Hospitalisation [Unknown]
  - Drug withdrawal syndrome [Unknown]
  - Personality change [Unknown]
  - Substance abuse [Recovered/Resolved]
  - Homicidal ideation [Unknown]
  - Loss of consciousness [Unknown]
  - Anger [Unknown]
  - Aggression [Unknown]
  - Drug dependence [Recovered/Resolved]
  - Anxiety [Not Recovered/Not Resolved]
  - Depression [Unknown]
  - Abnormal behaviour [Not Recovered/Not Resolved]
  - Overdose [Unknown]
  - Tendon operation [Unknown]
  - Judgement impaired [Unknown]
  - Malaise [Unknown]

NARRATIVE: CASE EVENT DATE: 2006
